FAERS Safety Report 23114726 (Version 1)
Quarter: 2023Q4

REPORT INFORMATION
  Report Type: Spontaneous
  Country: US (occurrence: US)
  Receive Date: 20231027
  Receipt Date: 20231027
  Transmission Date: 20240110
  Serious: Yes (Other)
  Sender: FDA-Public Use
  Company Number: US-MYLANLABS-2023M1112435

PATIENT
  Age: 61 Year
  Sex: Male
  Weight: 70 kg

DRUGS (1)
  1. LIDOCAINE [Suspect]
     Active Substance: LIDOCAINE
     Indication: Local anaesthesia
     Dosage: UNK (20CC (100MG/5CC- CONCENTRATION); VIA RIGHT INTERNAL JUGULAR VEIN (NECK))
     Route: 058

REACTIONS (5)
  - Seizure like phenomena [Recovering/Resolving]
  - Hypotension [Recovering/Resolving]
  - Mental status changes [Recovering/Resolving]
  - Toxicity to various agents [Recovering/Resolving]
  - Overdose [Recovering/Resolving]
